FAERS Safety Report 6992796-X (Version None)
Quarter: 2010Q3

REPORT INFORMATION
  Report Type: 
  Country: None (occurrence: None)
  Receive Date: 20100917
  Receipt Date: 20100914
  Transmission Date: 20110219
  Serious: Yes (Disabling, Other)
  Sender: FDA-Public Use
  Company Number: A0881104A

PATIENT
  Age: 92 Year
  Sex: Male

DRUGS (8)
  1. REQUIP [Suspect]
     Route: 048
     Dates: start: 20100801
  2. ACTOS [Concomitant]
  3. METFORMIN [Concomitant]
  4. METOPROLOL [Concomitant]
  5. FUROSEMIDE [Concomitant]
  6. PLAVIX [Concomitant]
  7. ASPIRIN [Concomitant]
  8. ALLOPURINOL [Concomitant]

REACTIONS (3)
  - DRUG INEFFECTIVE [None]
  - HEART RATE IRREGULAR [None]
  - OEDEMA PERIPHERAL [None]
